FAERS Safety Report 5662533-X (Version None)
Quarter: 2008Q1

REPORT INFORMATION
  Report Type: 
  Country: None (occurrence: None)
  Receive Date: 20080313
  Receipt Date: 20080304
  Transmission Date: 20080703
  Serious: No
  Sender: FDA-Public Use
  Company Number: US-BAYER-200815950NA

PATIENT
  Age: 34 Year
  Sex: Female

DRUGS (1)
  1. MIRENA [Suspect]
     Indication: CONTRACEPTION
     Route: 015
     Dates: start: 20071001

REACTIONS (8)
  - ABDOMINAL PAIN [None]
  - ADNEXA UTERI PAIN [None]
  - BACK PAIN [None]
  - MENORRHAGIA [None]
  - MENSTRUAL DISORDER [None]
  - MENSTRUATION DELAYED [None]
  - OVARIAN CYST RUPTURED [None]
  - PROCEDURAL PAIN [None]
